FAERS Safety Report 5044587-7 (Version None)
Quarter: 2006Q2

REPORT INFORMATION
  Report Type: 
  Country: None (occurrence: None)
  Receive Date: 20060601
  Receipt Date: 20060214
  Transmission Date: 20061013
  Serious: No
  Sender: FDA-Public Use
  Company Number: 2006-BP-01753BP

PATIENT

DRUGS (2)
  1. SPIRIVA [Suspect]
     Dosage: (18 MCG),IH
  2. COMBIVENT INHALATION AEROSOL (COMBIVENT /01261001/) [Suspect]
     Dosage: (SEE TEXT,18MCG/103MCG STRENGTH),IH

REACTIONS (1)
  - DRUG INEFFECTIVE [None]
